FAERS Safety Report 8267386-1 (Version None)
Quarter: 2012Q2

REPORT INFORMATION
  Report Type: 
  Country: None (occurrence: None)
  Receive Date: 20120409
  Receipt Date: 20120402
  Transmission Date: 20120825
  Serious: Yes (Hospitalization)
  Sender: FDA-Public Use
  Company Number: PHEH2012US003685

PATIENT
  Sex: Male

DRUGS (2)
  1. EXJADE [Suspect]
     Dosage: 1250 MG, DAILY
     Route: 048
  2. EXJADE [Suspect]
     Indication: IRON OVERLOAD
     Dosage: 1000 MG DAILY
     Route: 048
     Dates: start: 20120203

REACTIONS (3)
  - DYSPNOEA [None]
  - FATIGUE [None]
  - CARDIAC DISORDER [None]
